FAERS Safety Report 14063005 (Version 1)
Quarter: 2017Q4

REPORT INFORMATION
  Report Type: Report from Study
  Country: IT (occurrence: IT)
  Receive Date: 20171009
  Receipt Date: 20171009
  Transmission Date: 20180321
  Serious: Yes (Hospitalization)
  Sender: FDA-Public Use
  Company Number: IT-ROCHE-2005062

PATIENT

DRUGS (10)
  1. SINVACOR [Concomitant]
     Active Substance: SIMVASTATIN
     Route: 065
  2. BEVACIZUMAB. [Suspect]
     Active Substance: BEVACIZUMAB
     Indication: NON-SMALL CELL LUNG CANCER
     Dosage: DOSE: 15 MG/KG EVERY 21 DAYS (AS PER PROTOCOL)?MOST RECENT DOSE PRIOR TO SAE: 09/AUG/2017
     Route: 042
     Dates: start: 20170809, end: 20170822
  3. SEQUACOR [Concomitant]
     Active Substance: BISOPROLOL
     Route: 065
  4. ERLOTINIB [Suspect]
     Active Substance: ERLOTINIB
     Indication: NON-SMALL CELL LUNG CANCER
     Dosage: MOST RECENT DOSE PRIOR TO SAE: 22/AUG/2017 AND THERAPY INTERRUPTED
     Route: 048
     Dates: start: 20170809
  5. BEVACIZUMAB. [Suspect]
     Active Substance: BEVACIZUMAB
     Indication: NON-SMALL CELL LUNG CANCER
  6. PRITOR PLUS [Concomitant]
     Active Substance: TELMISARTAN
     Dosage: 80/12, 5 MG
     Route: 065
  7. ASA [Concomitant]
     Active Substance: ASPIRIN
     Route: 065
  8. UGUROL [Concomitant]
     Active Substance: TRANEXAMIC ACID
     Route: 065
     Dates: start: 20170823
  9. ERLOTINIB [Suspect]
     Active Substance: ERLOTINIB
     Indication: NON-SMALL CELL LUNG CANCER
     Dosage: THERAPY RESTARTED
     Route: 048
     Dates: start: 20170826
  10. SOLDESAM [Concomitant]
     Active Substance: DEXAMETHASONE
     Route: 065

REACTIONS (1)
  - Atelectasis [Recovered/Resolved]

NARRATIVE: CASE EVENT DATE: 20170823
